FAERS Safety Report 12827668 (Version 2)
Quarter: 2016Q4

REPORT INFORMATION
  Report Type: Report from Study
  Country: US (occurrence: US)
  Receive Date: 20161006
  Receipt Date: 20161104
  Transmission Date: 20170207
  Serious: Yes (Hospitalization)
  Sender: FDA-Public Use
  Company Number: US-B.I. PHARMACEUTICALS,INC./RIDGEFIELD-2016-BI-37889BP

PATIENT
  Sex: Male

DRUGS (2)
  1. REMODULIN [Suspect]
     Active Substance: TREPROSTINIL
     Indication: PRODUCT USED FOR UNKNOWN INDICATION
     Route: 065
  2. OFEV [Suspect]
     Active Substance: NINTEDANIB
     Indication: IDIOPATHIC PULMONARY FIBROSIS
     Route: 048
     Dates: start: 20160415

REACTIONS (13)
  - Productive cough [Unknown]
  - Decreased appetite [Unknown]
  - Pain in extremity [Unknown]
  - Arthralgia [Unknown]
  - Influenza like illness [Unknown]
  - Nausea [Unknown]
  - Device dislocation [Unknown]
  - Cough [Unknown]
  - Injection site erythema [Unknown]
  - Back pain [Unknown]
  - Dyspnoea [Unknown]
  - Dyspnoea exertional [Unknown]
  - Injection site pain [Unknown]
